FAERS Safety Report 16730060 (Version 1)
Quarter: 2019Q3

REPORT INFORMATION
  Report Type: Report from Study
  Country: AT (occurrence: AT)
  Receive Date: 20190822
  Receipt Date: 20190822
  Transmission Date: 20191005
  Serious: Yes (Hospitalization)
  Sender: FDA-Public Use
  Company Number: AT-PACIRA-201500086

PATIENT
  Age: 9 Year
  Sex: Female
  Weight: 24 kg

DRUGS (9)
  1. FENOFIBRATE. [Concomitant]
     Active Substance: FENOFIBRATE
     Indication: PRODUCT USED FOR UNKNOWN INDICATION
     Dosage: 100 MG, DAILY, FREQUENCY : DAILY
     Route: 048
     Dates: start: 20140811
  2. EUTHYROX [Concomitant]
     Active Substance: LEVOTHYROXINE SODIUM
     Indication: PRODUCT USED FOR UNKNOWN INDICATION
     Dosage: 50 MCG, DAILY
     Route: 048
     Dates: start: 20140805
  3. ETOPOSIDE. [Concomitant]
     Active Substance: ETOPOSIDE
     Indication: PRODUCT USED FOR UNKNOWN INDICATION
     Dosage: 10.76 MG, DAILY, FREQUENCY : DAILY
     Route: 048
     Dates: end: 20150101
  4. ETOPOSIDE. [Concomitant]
     Active Substance: ETOPOSIDE
     Indication: PRODUCT USED FOR UNKNOWN INDICATION
     Dosage: 0.5 MG, EVERY 4 WEEKS; ROUTE: INTRAVENTRICULAR
     Dates: start: 20140811
  5. THALIDOMIDE [Concomitant]
     Active Substance: THALIDOMIDE
     Indication: PRODUCT USED FOR UNKNOWN INDICATION
     Dosage: 50 MG, DAILY, FREQUENCY : DAILY
     Route: 048
     Dates: start: 20140811
  6. DEPOCYT [Suspect]
     Active Substance: CYTARABINE
     Indication: MEDULLOBLASTOMA
     Dosage: 35 MG, EVERY 4 WEEKS, ROUTE: INTRAVENTRICULAR
     Dates: start: 20140826, end: 20141216
  7. CELECOXIB. [Concomitant]
     Active Substance: CELECOXIB
     Indication: PRODUCT USED FOR UNKNOWN INDICATION
     Dosage: 400 MG, DAILY, FREQUENCY : DAILY
     Route: 048
     Dates: start: 20140811
  8. EUSAPRIM [Concomitant]
     Active Substance: SULFAMETHOXAZOLE\TRIMETHOPRIM
     Indication: PRODUCT USED FOR UNKNOWN INDICATION
     Dosage: 56 MG, 2X, MONDAY - WEDNESDAY, FREQUENCY : 2X
     Dates: start: 20140811
  9. CIPROXIN [Concomitant]
     Active Substance: CIPROFLOXACIN
     Indication: PRODUCT USED FOR UNKNOWN INDICATION
     Dosage: 56 MG, 2X, DAILY, FREQUENCY : 2X
     Route: 048
     Dates: start: 20141230

REACTIONS (1)
  - Seizure [Recovered/Resolved]

NARRATIVE: CASE EVENT DATE: 20150107
